FAERS Safety Report 4326252-4 (Version None)
Quarter: 2004Q1

REPORT INFORMATION
  Report Type: 
  Country: None (occurrence: None)
  Receive Date: 20040324
  Receipt Date: 20040305
  Transmission Date: 20041129
  Serious: Yes (Hospitalization)
  Sender: FDA-Public Use
  Company Number: E131500

PATIENT
  Age: 62 Year
  Sex: Male

DRUGS (5)
  1. (OXALIPLATIN) - SOLUTION - 85 MG/M2 [Suspect]
     Indication: COLORECTAL CANCER
     Dosage: 85 MG/M2 Q2W, INTRAVENOUS NOS
     Route: 042
     Dates: start: 20020313, end: 20020313
  2. FLUOROURACIL [Suspect]
     Dosage: 2000 MG/M2 (400 MG/M2 BOLUS THEN 600 MG/M2 HOUR CONTINUOUS ON D1 AND D2 Q2W, INTRAVENOUS NOS,
     Route: 042
     Dates: start: 20020313, end: 20020313
  3. LEUCOVORIN CALCIUM [Suspect]
     Dosage: 200 MG/M2 IN 2 HOURS INTRAVENOUS INFUSION, D1 AND D2, Q2W
     Route: 042
     Dates: start: 20020313, end: 20020314
  4. WARFARIN SODIUM [Concomitant]
  5. CO-PROXAMOL [Concomitant]

REACTIONS (4)
  - FEBRILE NEUTROPENIA [None]
  - LEUKOPENIA [None]
  - NEUTROPENIC SEPSIS [None]
  - STAPHYLOCOCCAL INFECTION [None]
